FAERS Safety Report 5248586-1 (Version None)
Quarter: 2007Q1

REPORT INFORMATION
  Report Type: 
  Country: None (occurrence: None)
  Receive Date: 20070222
  Receipt Date: 20070209
  Transmission Date: 20070707
  Serious: Yes (Hospitalization, Other)
  Sender: FDA-Public Use
  Company Number: 2007VX000500

PATIENT
  Age: 76 Year
  Sex: 0

DRUGS (5)
  1. PERMAX [Suspect]
     Indication: PARKINSON'S DISEASE
     Dosage: 750 UG;QD;PO
     Route: 048
     Dates: end: 20061212
  2. PERMAX [Suspect]
     Indication: PARKINSON'S DISEASE
     Dosage: 750 UG;QD;PO
     Route: 048
     Dates: start: 20070112
  3. SYMMETREL [Concomitant]
  4. DOPS [Concomitant]
  5. MADOPAR [Concomitant]

REACTIONS (9)
  - ACTIVITIES OF DAILY LIVING IMPAIRED [None]
  - BILIARY TRACT INFECTION [None]
  - CHOLANGITIS [None]
  - CHOLECYSTITIS [None]
  - GAIT DISTURBANCE [None]
  - HEPATIC FUNCTION ABNORMAL [None]
  - ORAL INTAKE REDUCED [None]
  - PNEUMONIA [None]
  - PYELONEPHRITIS [None]
